FAERS Safety Report 7554018-0 (Version None)
Quarter: 2011Q2

REPORT INFORMATION
  Report Type: 
  Country: None (occurrence: None)
  Receive Date: 20110614
  Receipt Date: 20110614
  Transmission Date: 20111010
  Serious: No
  Sender: FDA-Public Use
  Company Number: None

PATIENT
  Sex: Female
  Weight: 49.8 kg

DRUGS (1)
  1. ENBREL [Suspect]
     Indication: RHEUMATOID ARTHRITIS
     Dosage: 40MG SQ QW
     Route: 058
     Dates: start: 20110517

REACTIONS (3)
  - CRYING [None]
  - MOOD SWINGS [None]
  - PAIN IN JAW [None]
